FAERS Safety Report 13376655 (Version 1)
Quarter: 2017Q1

REPORT INFORMATION
  Report Type: Spontaneous
  Country: US (occurrence: US)
  Receive Date: 20170328
  Receipt Date: 20170328
  Transmission Date: 20170429
  Serious: No
  Sender: FDA-Public Use
  Company Number: US-009507513-1703USA010106

PATIENT
  Age: 22 Year
  Sex: Female
  Weight: 51.25 kg

DRUGS (1)
  1. NEXPLANON [Suspect]
     Active Substance: ETONOGESTREL
     Indication: CONTRACEPTION
     Dosage: 1 IMPLANT EVERY 3 YEARS; ROUTE OF ADMINISTRATION: IMPLANT ON THE LEFT ARM.
     Route: 059
     Dates: start: 20160719

REACTIONS (2)
  - Amenorrhoea [Unknown]
  - Vaginal haemorrhage [Unknown]
